FAERS Safety Report 4392830-X (Version None)
Quarter: 2004Q3

REPORT INFORMATION
  Report Type: 
  Country: None (occurrence: None)
  Receive Date: 20040708
  Receipt Date: 20040610
  Transmission Date: 20050211
  Serious: Yes (Life-Threatening, Hospitalization, Other)
  Sender: FDA-Public Use
  Company Number: PHBS2004FR07664

PATIENT
  Age: 72 Year
  Sex: Male

DRUGS (2)
  1. PARLODEL [Suspect]
     Indication: PARKINSON'S DISEASE
     Dosage: 40 MG/DAY
     Dates: start: 19960101
  2. MADOPAR [Suspect]
     Indication: PARKINSON'S DISEASE
     Dates: start: 19940101

REACTIONS (21)
  - AGITATION [None]
  - ASTHENIA [None]
  - CARDIOMEGALY [None]
  - CHEST PAIN [None]
  - CONFUSIONAL STATE [None]
  - DELUSION [None]
  - DIZZINESS [None]
  - DRY MOUTH [None]
  - HALLUCINATION [None]
  - HEPATIC PAIN [None]
  - HEPATOJUGULAR REFLUX [None]
  - JUGULAR VEIN DISTENSION [None]
  - OEDEMA PERIPHERAL [None]
  - PERICARDIAL EFFUSION [None]
  - PLEURAL EFFUSION [None]
  - PLEUROPERICARDITIS [None]
  - PNEUMONIA ASPIRATION [None]
  - RESPIRATORY DISTRESS [None]
  - RIGHT VENTRICULAR FAILURE [None]
  - SIALOADENITIS [None]
  - SJOGREN'S SYNDROME [None]
